FAERS Safety Report 9725474 (Version 1)
Quarter: 2013Q4

REPORT INFORMATION
  Report Type: Spontaneous
  Country: US (occurrence: None)
  Receive Date: 20131127
  Receipt Date: 20131127
  Transmission Date: 20140711
  Serious: Yes (Hospitalization)
  Sender: FDA-Public Use
  Company Number: 2013-1846

PATIENT
  Age: 69 Year
  Sex: Male
  Weight: 94.8 kg

DRUGS (2)
  1. CARFILZOMIB [Suspect]
     Indication: PLASMA CELL MYELOMA
     Route: 042
     Dates: start: 20131105, end: 20131105
  2. MELPHALAN (MELPHALAN) (MELPHALAN) [Concomitant]

REACTIONS (3)
  - Atrial fibrillation [None]
  - Dyspnoea [None]
  - Chest discomfort [None]
